FAERS Safety Report 4664839-X (Version None)
Quarter: 2005Q2

REPORT INFORMATION
  Report Type: 
  Country: None (occurrence: None)
  Receive Date: 20050517
  Receipt Date: 20050504
  Transmission Date: 20051028
  Serious: Yes (Hospitalization)
  Sender: FDA-Public Use
  Company Number: HQWYE557805MAY05

PATIENT
  Age: 34 Year
  Sex: Male

DRUGS (4)
  1. RAPAMUNE [Suspect]
     Indication: PROPHYLAXIS AGAINST TRANSPLANT REJECTION
     Dosage: 6 MG ORAL
     Route: 048
     Dates: start: 20050406
  2. MYCOPHENOLATE MOFETIL (MYCOPHENOLATE MOFETIL, ) [Suspect]
     Indication: PROPHYLAXIS AGAINST TRANSPLANT REJECTION
     Dosage: 2 G ORAL
     Route: 048
     Dates: start: 20050406
  3. PREDNISONE [Suspect]
     Dosage: 20 MG ORAL
     Route: 048
  4. ZENAPAX [Suspect]
     Dosage: 2 X 100 MG ORAL
     Route: 048

REACTIONS (4)
  - HAEMODIALYSIS [None]
  - ISCHAEMIA [None]
  - LYMPHOCELE [None]
  - RENAL TUBULAR NECROSIS [None]
